FAERS Safety Report 5840084-7 (Version None)
Quarter: 2008Q3

REPORT INFORMATION
  Report Type: 
  Country: None (occurrence: None)
  Receive Date: 20080811
  Receipt Date: 20080805
  Transmission Date: 20090109
  Serious: Yes (Other)
  Sender: FDA-Public Use
  Company Number: B0361281A

PATIENT
  Sex: Female

DRUGS (5)
  1. SEROXAT [Suspect]
     Route: 065
     Dates: start: 19960920
  2. DIAZEPAM [Concomitant]
     Indication: PANIC ATTACK
     Route: 065
     Dates: start: 19981224
  3. ZIMOVANE [Concomitant]
     Dosage: 7.5MG AT NIGHT
     Dates: start: 19970211
  4. PARAMAX [Concomitant]
     Indication: MIGRAINE
     Dates: start: 19970522
  5. PROPRANOLOL [Concomitant]
     Dates: start: 19980101

REACTIONS (42)
  - ABDOMINAL PAIN UPPER [None]
  - ACNE [None]
  - ADVERSE DRUG REACTION [None]
  - ANXIETY [None]
  - ANXIETY DISORDER [None]
  - ASTHENIA [None]
  - BALANCE DISORDER [None]
  - CONDITION AGGRAVATED [None]
  - DEPERSONALISATION [None]
  - DEPRESSION [None]
  - DIARRHOEA [None]
  - DIZZINESS [None]
  - DRY MOUTH [None]
  - FATIGUE [None]
  - FEELING HOT [None]
  - FOOD CRAVING [None]
  - HALLUCINATION, AUDITORY [None]
  - HALLUCINATION, VISUAL [None]
  - HYPERACUSIS [None]
  - HYPOGLYCAEMIA [None]
  - ILL-DEFINED DISORDER [None]
  - INFLUENZA LIKE ILLNESS [None]
  - LETHARGY [None]
  - LIMB DISCOMFORT [None]
  - MALAISE [None]
  - MENSTRUATION IRREGULAR [None]
  - MIGRAINE [None]
  - MYALGIA [None]
  - MYOCLONUS [None]
  - NAUSEA [None]
  - OBESITY [None]
  - PANIC REACTION [None]
  - PARAESTHESIA [None]
  - POOR QUALITY SLEEP [None]
  - SUICIDAL IDEATION [None]
  - TACHYCARDIA [None]
  - TREATMENT NONCOMPLIANCE [None]
  - TREMOR [None]
  - VISION BLURRED [None]
  - VOMITING [None]
  - WEIGHT INCREASED [None]
  - WITHDRAWAL SYNDROME [None]
